FAERS Safety Report 5708170-X (Version None)
Quarter: 2008Q2

REPORT INFORMATION
  Report Type: 
  Country: None (occurrence: None)
  Receive Date: 20080417
  Receipt Date: 20080409
  Transmission Date: 20081010
  Serious: Yes (Hospitalization)
  Sender: FDA-Public Use
  Company Number: B0516233A

PATIENT
  Age: 37 Year
  Sex: Male

DRUGS (5)
  1. CLAMOXYL [Suspect]
     Indication: SINUSITIS
     Dosage: 1000MG TWICE PER DAY
     Route: 048
     Dates: start: 20080201, end: 20080205
  2. CLAMOXYL [Suspect]
     Indication: PHARYNGITIS
     Dosage: 1000MG TWICE PER DAY
     Route: 048
     Dates: start: 20080220, end: 20080225
  3. JOSACINE [Suspect]
     Indication: PHARYNGITIS
     Route: 048
     Dates: start: 20080228, end: 20080301
  4. DI ANTALVIC [Suspect]
     Indication: RENAL COLIC
     Route: 048
     Dates: start: 20080201, end: 20080201
  5. PROFENID [Suspect]
     Indication: RENAL COLIC
     Route: 048
     Dates: start: 20080201, end: 20080201

REACTIONS (11)
  - AGRANULOCYTOSIS [None]
  - ANGINA PECTORIS [None]
  - BONE MARROW FAILURE [None]
  - ESCHERICHIA SEPSIS [None]
  - HEPATITIS CHOLESTATIC [None]
  - INTESTINAL ISCHAEMIA [None]
  - PANCYTOPENIA [None]
  - PROCTITIS [None]
  - PROCTOCOLITIS [None]
  - SEPTIC SHOCK [None]
  - SUBILEUS [None]
